FAERS Safety Report 8463081-4 (Version None)
Quarter: 2012Q2

REPORT INFORMATION
  Report Type: 
  Country: None (occurrence: None)
  Receive Date: 20120625
  Receipt Date: 20100305
  Transmission Date: 20120825
  Serious: Yes (Other)
  Sender: FDA-Public Use
  Company Number: US-ROCHE-690072

PATIENT
  Sex: Female
  Weight: 63.5 kg

DRUGS (13)
  1. CLARINEX (UNITED STATES) [Concomitant]
  2. AVAPRO [Concomitant]
  3. NASONEX [Concomitant]
  4. BONIVA [Suspect]
     Indication: OSTEOPOROSIS
     Route: 048
  5. CARVEDILOL [Concomitant]
  6. LOVAZA [Concomitant]
  7. PRAVASTATIN [Concomitant]
  8. CALCIUM CARBONATE [Concomitant]
  9. DETROL [Concomitant]
  10. PAXIL [Concomitant]
  11. DEMADEX [Concomitant]
  12. MUCINEX [Concomitant]
  13. CITRACAL [Concomitant]

REACTIONS (5)
  - GAIT DISTURBANCE [None]
  - SPINAL COLUMN STENOSIS [None]
  - ARTHRALGIA [None]
  - MYALGIA [None]
  - INSOMNIA [None]
